FAERS Safety Report 11592045 (Version 2)
Quarter: 2015Q4

REPORT INFORMATION
  Report Type: Spontaneous
  Country: US (occurrence: US)
  Receive Date: 20151005
  Receipt Date: 20151007
  Transmission Date: 20160304
  Serious: No
  Sender: FDA-Public Use
  Company Number: US-PFIZER INC-2015320782

PATIENT
  Age: 59 Year
  Sex: Male

DRUGS (2)
  1. GABAPENTIN. [Suspect]
     Active Substance: GABAPENTIN
     Indication: DIABETIC NEUROPATHY
     Dosage: 600 MG, ONCE DAILY AT BEDTIME
     Route: 048
     Dates: start: 2005, end: 2015
  2. METFORMIN [Concomitant]
     Active Substance: METFORMIN HYDROCHLORIDE
     Indication: DIABETES MELLITUS
     Dosage: 500 MG, TWICE A DAY AS NEEDED
     Route: 048

REACTIONS (14)
  - Accident at work [Unknown]
  - Insomnia [Not Recovered/Not Resolved]
  - Disease progression [Unknown]
  - Dizziness [Not Recovered/Not Resolved]
  - Blood count abnormal [Unknown]
  - Anxiety [Unknown]
  - Gait disturbance [Unknown]
  - Back pain [Not Recovered/Not Resolved]
  - Hypertension [Unknown]
  - Drug ineffective for unapproved indication [Unknown]
  - Diabetic neuropathy [Unknown]
  - Neck pain [Not Recovered/Not Resolved]
  - Depression [Unknown]
  - Gastric disorder [Unknown]

NARRATIVE: CASE EVENT DATE: 2005
